FAERS Safety Report 22951002 (Version 2)
Quarter: 2023Q4

REPORT INFORMATION
  Report Type: Report from Study
  Country: US (occurrence: US)
  Receive Date: 20230916
  Receipt Date: 20231017
  Transmission Date: 20240110
  Serious: Yes (Death, Other)
  Sender: FDA-Public Use
  Company Number: US-ACADIA PHARMACEUTICALS INC.-ACA-2023-PIM-003974

PATIENT
  Age: 87 Year
  Sex: Male

DRUGS (26)
  1. NUPLAZID [Suspect]
     Active Substance: PIMAVANSERIN TARTRATE
     Indication: Parkinson^s disease psychosis
     Dosage: 34 MILLIGRAM, QD
     Route: 048
     Dates: start: 202308, end: 20230829
  2. NUPLAZID [Suspect]
     Active Substance: PIMAVANSERIN TARTRATE
     Indication: Parkinsonism
  3. NUPLAZID [Suspect]
     Active Substance: PIMAVANSERIN TARTRATE
     Indication: Dementia
  4. ACETAMINOPHEN [Concomitant]
     Active Substance: ACETAMINOPHEN
     Indication: Pain
     Dosage: 325 MILLIGRAM, BID
     Route: 048
     Dates: start: 20230724
  5. ALBUTEROL SULFATE [Concomitant]
     Active Substance: ALBUTEROL SULFATE
     Indication: Dyspnoea
     Dosage: 2 PUFF INHALE ORALLY EVERY 6 HOURS AS NEEDED
     Dates: start: 20230608
  6. AMLODIPINE BESYLATE [Concomitant]
     Active Substance: AMLODIPINE BESYLATE
     Dosage: 5 MILLIGRAM, QD, HOLD FOR SBP{90 AND PULSE {50
     Route: 048
     Dates: start: 20230609
  7. TRAMADOL HCL [Concomitant]
     Active Substance: TRAMADOL HYDROCHLORIDE
     Indication: Pain
     Dosage: 50 MILLIGRAM, QID, AS NEEDED
     Route: 048
  8. TIOTROPIUM BROMIDE MONOHYDRATE [Concomitant]
     Active Substance: TIOTROPIUM BROMIDE MONOHYDRATE
     Indication: Dyspnoea
     Dosage: 2 PUFF INHALE ORALLY (2.5 MCG/ACT)
     Dates: start: 20230609
  9. SERTRALINE HYDROCHLORIDE [Concomitant]
     Active Substance: SERTRALINE HYDROCHLORIDE
     Indication: Depression
     Dosage: 50 MILLIGRAM, QD
     Route: 048
  10. SEROQUEL [Concomitant]
     Active Substance: QUETIAPINE FUMARATE
     Indication: Psychotic disorder
     Dosage: 100 MILLIGRAM, QD (IN EVENING)
     Route: 048
     Dates: start: 20230803
  11. SEROQUEL [Concomitant]
     Active Substance: QUETIAPINE FUMARATE
     Dosage: 25 MILLIGRAM, QD
     Route: 048
     Dates: start: 20230803
  12. SENNA PLUS [Concomitant]
     Active Substance: DOCUSATE SODIUM\SENNOSIDES\SENNOSIDES A AND B
     Indication: Diarrhoea
     Dosage: 8.6-50 MG, GIVE 2 TABLET BY MOUTH ONE TIME A DAY FOR BOWEL CARE AND HOLD FOR LOOSE STOOL
     Dates: start: 20230802
  13. RIVASTIGMINE [Concomitant]
     Active Substance: RIVASTIGMINE
     Indication: Dermatitis
     Dosage: APPLY 1 PATCH TRANSDERMALLY IN THE EVENING
     Route: 062
     Dates: start: 20230608
  14. POLYETHYLENE GLYCOL 3350 [Concomitant]
     Active Substance: POLYETHYLENE GLYCOL 3350
     Indication: Constipation
     Dosage: 17 GRAM, QD, HOLD FOR LOOSE STOOL, GIVE IN 180-240 ML OF BEVERAGE
     Dates: start: 20230609
  15. NORCO [Concomitant]
     Active Substance: ACETAMINOPHEN\HYDROCODONE BITARTRATE
     Indication: Pain
     Dosage: 5-325 MG, GIVE 1 TABLET BY MOUTH FOUR TIMES A DAY
     Dates: start: 20230719
  16. MELATONIN [Concomitant]
     Active Substance: MELATONIN
     Indication: Insomnia
     Dosage: 6 MILLIGRAM IN EVENING
     Route: 048
     Dates: start: 20230608
  17. LOSARTAN POTASSIUM [Concomitant]
     Active Substance: LOSARTAN POTASSIUM
     Indication: Hypertension
     Dosage: 50 MILLIGRAM, QD, HOLD FOR SBP{110 OR PULSE {60
     Route: 048
     Dates: start: 20230609
  18. LORAZEPAM [Concomitant]
     Active Substance: LORAZEPAM
     Indication: Dementia
     Dosage: 1 TABLET IN THE EVENING
     Route: 048
     Dates: start: 20230719
  19. LIDOCAINE [Concomitant]
     Active Substance: LIDOCAINE
     Indication: Pain
     Dosage: 4 PRCENT; APPLY TO AFFECTED AREA
     Route: 061
     Dates: start: 20230609
  20. FINASTERIDE [Concomitant]
     Active Substance: FINASTERIDE
     Indication: Benign prostatic hyperplasia
     Dosage: 5 MILLIGRAM, QD
     Route: 048
     Dates: start: 20230609
  21. ENOXAPARIN SODIUM [Concomitant]
     Active Substance: ENOXAPARIN SODIUM
     Indication: Thrombosis
     Dosage: 40 MILLIGRAM, QD
     Route: 058
     Dates: start: 20230617
  22. DICLOFENAC SODIUM [Concomitant]
     Active Substance: DICLOFENAC\DICLOFENAC SODIUM
     Indication: Pain
     Dosage: 1 PERCENT, APPLY TO AFFECTED AREA EVERY 6 HOURS AS NEEDED
     Route: 061
     Dates: start: 20230711
  23. CHOLECALCIFEROL [Concomitant]
     Active Substance: CHOLECALCIFEROL
     Indication: Vitamin supplementation
     Dosage: 2000 UNIT ONE TIME A DAY
     Route: 048
     Dates: start: 20230609
  24. CARBIDOPA\LEVODOPA [Concomitant]
     Active Substance: CARBIDOPA\LEVODOPA
     Indication: Parkinson^s disease
     Dosage: 50-200 MG ER, 1 TABLET IN THE EVENING
     Dates: start: 20230608
  25. CARBIDOPA\LEVODOPA [Concomitant]
     Active Substance: CARBIDOPA\LEVODOPA
     Dosage: 25-100 MG, GIVE 3 TABLET FOUR TIMES A DAY, TABLET
     Route: 048
     Dates: start: 20230608
  26. BETADINE ANTISEPTIC [Concomitant]
     Indication: Urethral meatus stenosis
     Dosage: APPLY TO TIP OF PENIS
     Route: 061
     Dates: start: 20230623

REACTIONS (1)
  - Death [Recovered/Resolved]

NARRATIVE: CASE EVENT DATE: 20230829
